FAERS Safety Report 6001111-X (Version None)
Quarter: 2008Q4

REPORT INFORMATION
  Report Type: 
  Country: None (occurrence: None)
  Receive Date: 20081215
  Receipt Date: 20081204
  Transmission Date: 20090506
  Serious: No
  Sender: FDA-Public Use
  Company Number: CA-ASTRAZENECA-2008UW27074

PATIENT
  Age: 16979 Day
  Sex: Female

DRUGS (1)
  1. NEXIUM [Suspect]
     Route: 048

REACTIONS (1)
  - MIGRAINE [None]
